FAERS Safety Report 5696520-2 (Version None)
Quarter: 2008Q2

REPORT INFORMATION
  Report Type: 
  Country: None (occurrence: None)
  Receive Date: 20080408
  Receipt Date: 20080328
  Transmission Date: 20081010
  Serious: Yes (Hospitalization)
  Sender: FDA-Public Use
  Company Number: DE-JNJFOC-20080306868

PATIENT
  Age: 52 Year
  Sex: Male

DRUGS (3)
  1. TAVANIC [Suspect]
     Indication: INFLUENZA
     Route: 048
  2. CORTIZONE [Suspect]
     Indication: DRUG USE FOR UNKNOWN INDICATION
     Route: 065
  3. IMMUNOSUPPRESSIVE DRUGS [Concomitant]
     Indication: PROPHYLAXIS AGAINST TRANSPLANT REJECTION
     Dosage: TAKEN SINCE 6 YEARS
     Route: 065

REACTIONS (2)
  - JOINT SWELLING [None]
  - TENDON RUPTURE [None]
